FAERS Safety Report 18181023 (Version 3)
Quarter: 2020Q3

REPORT INFORMATION
  Report Type: Report from Study
  Country: ES (occurrence: ES)
  Receive Date: 20200821
  Receipt Date: 20200831
  Transmission Date: 20201103
  Serious: Yes (Hospitalization)
  Sender: FDA-Public Use
  Company Number: ES-BAYER-2020-137825

PATIENT
  Age: 53 Year
  Sex: Female
  Weight: 46 kg

DRUGS (11)
  1. EUTIROX [Concomitant]
     Active Substance: LEVOTHYROXINE SODIUM
     Indication: HYPOTHYROIDISM
     Dosage: 50 MCG/24H
     Route: 048
     Dates: start: 20200708
  2. TAPENTADOL [Concomitant]
     Active Substance: TAPENTADOL
     Indication: PAIN
     Dosage: 200 MG, QD
     Route: 048
     Dates: start: 20200605
  3. NIVOLUMAB [Suspect]
     Active Substance: NIVOLUMAB
     Indication: HEPATOCELLULAR CARCINOMA
     Dosage: 3 MG/KG
     Route: 042
     Dates: start: 20200804, end: 20200804
  4. REGORAFENIB. [Suspect]
     Active Substance: REGORAFENIB
     Indication: HEPATOCELLULAR CARCINOMA
     Dosage: REDUCED DOSE
     Route: 048
     Dates: start: 20200714, end: 20200810
  5. MORFINA [MORPHINE] [Concomitant]
     Indication: PAIN
     Dosage: 30 MG, QD
     Route: 048
     Dates: start: 20200612
  6. OMEPRAZOLE. [Concomitant]
     Active Substance: OMEPRAZOLE
     Indication: DYSPEPSIA
     Dosage: 20 MG, QD
     Route: 048
     Dates: start: 2019
  7. LORAZEPAM. [Concomitant]
     Active Substance: LORAZEPAM
     Indication: ANXIETY
     Dosage: 1 MG, QD
     Route: 048
     Dates: start: 2019, end: 20200711
  8. PROPRANOLOL [Concomitant]
     Active Substance: PROPRANOLOL HYDROCHLORIDE
     Indication: HEPATIC CIRRHOSIS
     Dosage: 20 MG, QD
     Route: 048
     Dates: start: 20200526
  9. ESPIRONOLACTONA [Concomitant]
     Active Substance: SPIRONOLACTONE
     Indication: HEPATIC CIRRHOSIS
     Dosage: 25 MG, QD
     Route: 048
     Dates: start: 2019
  10. FUROSEMIDA GENFAR [FUROSEMIDE] [Concomitant]
     Indication: HEPATIC CIRRHOSIS
     Dosage: 20 MG, QD
     Route: 048
     Dates: start: 2019
  11. REGORAFENIB. [Suspect]
     Active Substance: REGORAFENIB
     Indication: HEPATOCELLULAR CARCINOMA
     Dosage: 80 MG
     Route: 048
     Dates: start: 20200602, end: 20200706

REACTIONS (2)
  - Sepsis [Recovered/Resolved]
  - Hepatic encephalopathy [Recovered/Resolved]

NARRATIVE: CASE EVENT DATE: 20200707
